FAERS Safety Report 16608050 (Version 1)
Quarter: 2019Q3

REPORT INFORMATION
  Report Type: Spontaneous
  Country: BR (occurrence: BR)
  Receive Date: 20190722
  Receipt Date: 20190722
  Transmission Date: 20191004
  Serious: Yes (Other)
  Sender: FDA-Public Use
  Company Number: BR-VALIDUS PHARMACEUTICALS LLC-BR-2019VAL000301

PATIENT

DRUGS (2)
  1. ROCALTROL [Suspect]
     Active Substance: CALCITRIOL
     Indication: POST PROCEDURAL HYPOTHYROIDISM
     Dosage: 0.2558MG/DL, BID
     Route: 042
  2. ROCALTROL [Suspect]
     Active Substance: CALCITRIOL
     Indication: OFF LABEL USE

REACTIONS (3)
  - Off label use [Unknown]
  - Intentional product use issue [Unknown]
  - Hypocalcaemia [Unknown]
